FAERS Safety Report 13864978 (Version 3)
Quarter: 2017Q4

REPORT INFORMATION
  Report Type: Spontaneous
  Country: US (occurrence: US)
  Receive Date: 20170814
  Receipt Date: 20171016
  Transmission Date: 20180320
  Serious: Yes (Hospitalization)
  Sender: FDA-Public Use
  Company Number: US-PFIZER INC-2017349391

PATIENT
  Sex: Female

DRUGS (2)
  1. ENBREL [Suspect]
     Active Substance: ETANERCEPT
     Dosage: 50 MG/ML, UNK
  2. PANTOPRAZOLE [Suspect]
     Active Substance: PANTOPRAZOLE
     Dosage: 40 MG, DAILY

REACTIONS (14)
  - Arthralgia [Unknown]
  - Metatarsalgia [Unknown]
  - Intervertebral disc degeneration [Unknown]
  - Back pain [Unknown]
  - Musculoskeletal stiffness [Unknown]
  - Nausea [Unknown]
  - Blood pressure increased [Unknown]
  - Groin pain [Unknown]
  - Cervical spinal stenosis [Unknown]
  - Abdominal pain [Unknown]
  - Pain in extremity [Unknown]
  - Joint stiffness [Unknown]
  - Joint range of motion decreased [Unknown]
  - Intervertebral disc protrusion [Unknown]
